FAERS Safety Report 5492230-5 (Version None)
Quarter: 2007Q4

REPORT INFORMATION
  Report Type: 
  Country: None (occurrence: None)
  Receive Date: 20071022
  Receipt Date: 20071011
  Transmission Date: 20080405
  Serious: Yes (Hospitalization, Other)
  Sender: FDA-Public Use
  Company Number: US-ROCHE-479480

PATIENT
  Age: 24 Year
  Sex: Male
  Weight: 90.7 kg

DRUGS (1)
  1. ACCUTANE [Suspect]
     Indication: ACNE
     Route: 065
     Dates: start: 19850601, end: 19860217

REACTIONS (15)
  - ANAEMIA [None]
  - ANGIOPATHY [None]
  - COLITIS [None]
  - COLITIS ULCERATIVE [None]
  - DEEP VEIN THROMBOSIS [None]
  - HAEMORRHOIDS [None]
  - HEPATIC ENZYME INCREASED [None]
  - ILEITIS [None]
  - INFLAMMATORY BOWEL DISEASE [None]
  - IRRITABLE BOWEL SYNDROME [None]
  - PANCREATITIS [None]
  - RECTAL HAEMORRHAGE [None]
  - TENDONITIS [None]
  - THROMBOPHLEBITIS [None]
  - THROMBOSIS [None]
